FAERS Safety Report 18411837 (Version 1)
Quarter: 2020Q4

REPORT INFORMATION
  Report Type: Spontaneous
  Country: PL (occurrence: PL)
  Receive Date: 20201021
  Receipt Date: 20201021
  Transmission Date: 20210114
  Serious: Yes (Hospitalization)
  Sender: FDA-Public Use
  Company Number: PL-009507513-2010POL007386

PATIENT
  Age: 44 Year
  Sex: Female

DRUGS (1)
  1. PREVYMIS [Suspect]
     Active Substance: LETERMOVIR
     Indication: PROPHYLAXIS
     Dosage: 480MG ONCE A DAY
     Route: 048
     Dates: start: 20200607, end: 20200715

REACTIONS (2)
  - No adverse event [Unknown]
  - Off label use [Unknown]
